FAERS Safety Report 8785785 (Version 2)
Quarter: 2013Q1

REPORT INFORMATION
  Report Type: Report from Study
  Country: FR (occurrence: FR)
  Receive Date: 20120914
  Receipt Date: 20130225
  Transmission Date: 20140127
  Serious: Yes (Other)
  Sender: FDA-Public Use
  Company Number: FR-GLAXOSMITHKLINE-B0826085A

PATIENT
  Age: 64 Year
  Sex: Female
  Weight: 75 kg

DRUGS (9)
  1. SOTALEX [Concomitant]
  2. ZOLPIDEM TARTRATE [Concomitant]
  3. CIPROFLOXACIN [Concomitant]
  4. PARIET [Concomitant]
  5. MEDIATENSYL [Concomitant]
  6. AMLOR [Concomitant]
  7. CRESTOR [Concomitant]
  8. PAZOPANIB [Suspect]
     Indication: SARCOMA
     Dosage: 600MG PER DAY
     Route: 048
     Dates: start: 20120424
  9. GEMCITABINE [Suspect]
     Indication: SARCOMA
     Dosage: 1120MG CYCLIC
     Route: 042
     Dates: start: 20120424

REACTIONS (1)
  - Diplopia [Recovered/Resolved]
